FAERS Safety Report 5281333-6 (Version None)
Quarter: 2007Q1

REPORT INFORMATION
  Report Type: 
  Country: None (occurrence: None)
  Receive Date: 20070328
  Receipt Date: 20070328
  Transmission Date: 20070707
  Serious: Yes (Other)
  Sender: FDA-Public Use
  Company Number: None

PATIENT
  Age: 57 Year
  Sex: Female
  Weight: 69.8539 kg

DRUGS (1)
  1. IVY DRY SUPER [Suspect]
     Indication: DERMATITIS CONTACT
     Dosage: SPRAY  3 APPLICATIONS
     Dates: start: 20060616

REACTIONS (3)
  - CONDITION AGGRAVATED [None]
  - DERMATITIS CONTACT [None]
  - SCAR [None]
